FAERS Safety Report 7465688-X (Version None)
Quarter: 2011Q2

REPORT INFORMATION
  Report Type: 
  Country: None (occurrence: None)
  Receive Date: 20110509
  Receipt Date: 20110127
  Transmission Date: 20111010
  Serious: Yes (Other)
  Sender: FDA-Public Use
  Company Number: B0697268A

PATIENT
  Sex: Female

DRUGS (3)
  1. LAMICTAL [Suspect]
     Indication: EPILEPSY
     Dosage: 500MG PER DAY
     Route: 065
     Dates: start: 20050101
  2. KEPPRA [Concomitant]
     Indication: EPILEPSY
     Dosage: 1000MG PER DAY
     Route: 065
     Dates: start: 20101001
  3. IMPLANON [Concomitant]
     Indication: CONTRACEPTION
     Dates: start: 20090801

REACTIONS (2)
  - EPILEPSY [None]
  - EYE MOVEMENT DISORDER [None]
